FAERS Safety Report 13180011 (Version 2)
Quarter: 2017Q1

REPORT INFORMATION
  Report Type: Report from Study
  Country: AR (occurrence: AR)
  Receive Date: 20170202
  Receipt Date: 20170206
  Transmission Date: 20170428
  Serious: Yes (Death, Hospitalization)
  Sender: FDA-Public Use
  Company Number: PHHY2017AR015941

PATIENT
  Age: 78 Year
  Sex: Male

DRUGS (2)
  1. SANDOSTATIN LAR DEPOT [Suspect]
     Active Substance: OCTREOTIDE ACETATE
     Indication: NEUROENDOCRINE TUMOUR
     Dosage: 30 MG, QD
     Route: 065
     Dates: start: 20161021, end: 20161202
  2. INSULIN [Concomitant]
     Active Substance: INSULIN NOS
     Indication: DIABETES MELLITUS
     Dosage: UNK
     Route: 065

REACTIONS (7)
  - Internal haemorrhage [Unknown]
  - Haematemesis [Unknown]
  - Haemorrhage [Unknown]
  - Anal haemorrhage [Unknown]
  - Inappropriate schedule of drug administration [Unknown]
  - Cardio-respiratory arrest [Fatal]
  - Pain [Unknown]

NARRATIVE: CASE EVENT DATE: 20161202
